FAERS Safety Report 9086572 (Version 1)
Quarter: 2013Q1

REPORT INFORMATION
  Report Type: Report from Study
  Country: US (occurrence: US)
  Receive Date: 20130217
  Receipt Date: 20130217
  Transmission Date: 20140127
  Serious: Yes (Hospitalization)
  Sender: FDA-Public Use
  Company Number: US-JNJFOC-20130204495

PATIENT
  Age: 18 Year
  Sex: Female
  Weight: 55.5 kg

DRUGS (3)
  1. REMICADE [Suspect]
     Indication: COLITIS ULCERATIVE
     Route: 042
     Dates: start: 20091102
  2. 5-ASA [Concomitant]
  3. PREDNISONE [Concomitant]

REACTIONS (1)
  - Colitis ulcerative [Recovered/Resolved]
